FAERS Safety Report 7401774-8 (Version None)
Quarter: 2011Q2

REPORT INFORMATION
  Report Type: 
  Country: None (occurrence: None)
  Receive Date: 20110408
  Receipt Date: 20110404
  Transmission Date: 20111010
  Serious: Yes (Other)
  Sender: FDA-Public Use
  Company Number: US-PFIZER INC-2010152217

PATIENT
  Sex: Female
  Weight: 61.2 kg

DRUGS (3)
  1. ESTRING [Suspect]
     Indication: VULVOVAGINAL DRYNESS
     Dosage: 2 MG, UNK
     Route: 067
     Dates: start: 20101110, end: 20101117
  2. ESTRING [Suspect]
     Indication: MENOPAUSE
  3. ESTRING [Suspect]
     Indication: DYSPAREUNIA

REACTIONS (4)
  - VAGINAL HAEMORRHAGE [None]
  - URINARY TRACT INFECTION [None]
  - ABDOMINAL PAIN [None]
  - VULVOVAGINAL PAIN [None]
